FAERS Safety Report 16910173 (Version 1)
Quarter: 2019Q4

REPORT INFORMATION
  Report Type: Report from Study
  Country: US (occurrence: US)
  Receive Date: 20191011
  Receipt Date: 20191011
  Transmission Date: 20200122
  Serious: Yes (Other)
  Sender: FDA-Public Use
  Company Number: US-JNJFOC-20191003527

PATIENT

DRUGS (1)
  1. LEVOFLOXACIN. [Suspect]
     Active Substance: LEVOFLOXACIN
     Indication: SEPSIS
     Route: 065

REACTIONS (3)
  - Therapeutic response decreased [Unknown]
  - Product use in unapproved indication [Unknown]
  - Off label use [Unknown]
